FAERS Safety Report 12682921 (Version 1)
Quarter: 2016Q3

REPORT INFORMATION
  Report Type: Spontaneous
  Country: US (occurrence: US)
  Receive Date: 20160825
  Receipt Date: 20160825
  Transmission Date: 20161109
  Serious: Yes (Other)
  Sender: FDA-Public Use
  Company Number: US-APOTEX-2016AP010525

PATIENT
  Sex: Female

DRUGS (1)
  1. OMEPRAZOLE. [Suspect]
     Active Substance: OMEPRAZOLE
     Indication: PRODUCT USED FOR UNKNOWN INDICATION
     Route: 065

REACTIONS (5)
  - Arthralgia [Unknown]
  - Oesophageal infection [Unknown]
  - Gastrointestinal infection [Unknown]
  - Muscle spasms [Unknown]
  - Weight decreased [Unknown]
